FAERS Safety Report 14753612 (Version 1)
Quarter: 2018Q2

REPORT INFORMATION
  Report Type: Spontaneous
  Country: US (occurrence: US)
  Receive Date: 20180406
  Receipt Date: 20180406
  Transmission Date: 20180711
  Serious: Yes (Other)
  Sender: FDA-Public Use
  Company Number: None

PATIENT
  Age: 30 Year
  Sex: Female
  Weight: 65.77 kg

DRUGS (2)
  1. PRE-NATAL VITAMINS [Concomitant]
  2. PARAGARD T 380A [Suspect]
     Active Substance: COPPER
     Dates: start: 20140709, end: 20180314

REACTIONS (7)
  - Tenderness [None]
  - Nausea [None]
  - Menstruation irregular [None]
  - Muscle spasms [None]
  - Mood swings [None]
  - Abdominal distension [None]
  - Breast swelling [None]

NARRATIVE: CASE EVENT DATE: 20180406
